FAERS Safety Report 8113560-4 (Version None)
Quarter: 2012Q1

REPORT INFORMATION
  Report Type: 
  Country: None (occurrence: None)
  Receive Date: 20120203
  Receipt Date: 20120201
  Transmission Date: 20120608
  Serious: Yes (Other)
  Sender: FDA-Public Use
  Company Number: US-BAYER-2012-010791

PATIENT
  Age: 73 Year
  Sex: Female
  Weight: 82 kg

DRUGS (7)
  1. METFORMIN HCL [Concomitant]
  2. SYNTHROID [Concomitant]
  3. RAMIPRIL [Concomitant]
  4. ASPIRIN [Suspect]
     Indication: ISCHAEMIC HEART DISEASE PROPHYLAXIS
     Dosage: 750 MG, HS
     Route: 048
     Dates: start: 20120101
  5. CARVEDILOL [Concomitant]
  6. HYDROCHLOROTHIAZIDE [Concomitant]
  7. FENOFIBRATE [Concomitant]

REACTIONS (1)
  - RECTAL HAEMORRHAGE [None]
